FAERS Safety Report 8870712 (Version 1)
Quarter: 2012Q4

REPORT INFORMATION
  Report Type: 
  Country: US (occurrence: US)
  Receive Date: 20121029
  Receipt Date: 20121029
  Transmission Date: 20130627
  Serious: Yes (Other)
  Sender: FDA-Public Use
  Company Number: US-BIOGENIDEC-2010BI044284

PATIENT
  Age: 35 Year
  Sex: Female

DRUGS (1)
  1. AVONEX [Suspect]
     Indication: MULTIPLE SCLEROSIS
     Route: 030
     Dates: start: 20080728, end: 20101031

REACTIONS (3)
  - Convulsion [Recovered/Resolved]
  - Fear of needles [Not Recovered/Not Resolved]
  - Multiple sclerosis [Not Recovered/Not Resolved]
